FAERS Safety Report 6576741-7 (Version None)
Quarter: 2010Q1

REPORT INFORMATION
  Report Type: 
  Country: None (occurrence: None)
  Receive Date: 20100210
  Receipt Date: 20100202
  Transmission Date: 20100710
  Serious: Yes (Other)
  Sender: FDA-Public Use
  Company Number: GB-SANOFI-AVENTIS-2010SA006563

PATIENT
  Age: 31 Year
  Sex: Female

DRUGS (1)
  1. RIFINAH [Suspect]
     Indication: LATENT TUBERCULOSIS
     Route: 048
     Dates: start: 20100108, end: 20100124

REACTIONS (4)
  - ABNORMAL BEHAVIOUR [None]
  - AGITATION [None]
  - INSOMNIA [None]
  - PSYCHOTIC DISORDER [None]
